FAERS Safety Report 24342259 (Version 1)
Quarter: 2024Q3

REPORT INFORMATION
  Report Type: Spontaneous
  Country: BR (occurrence: BR)
  Receive Date: 20240920
  Receipt Date: 20240920
  Transmission Date: 20241017
  Serious: Yes (Other)
  Sender: TEVA
  Company Number: BR-TEVA-VS-3230668

PATIENT
  Age: 41 Year
  Sex: Female

DRUGS (3)
  1. CARBOPLATIN [Suspect]
     Active Substance: CARBOPLATIN
     Indication: Ovarian neoplasm
     Dosage: INJECTABLE- 45ML.
     Route: 065
     Dates: start: 20240719, end: 20240719
  2. PHENERGAN [Concomitant]
     Active Substance: PROMETHAZINE HYDROCHLORIDE
     Indication: Product used for unknown indication
     Dosage: 1 AMP IM
     Route: 065
  3. 0.9% saline solution 500ml IV [Concomitant]
     Indication: Product used for unknown indication
     Dosage: 0.9% SALINE SOLUTION 500ML IV
     Route: 042

REACTIONS (8)
  - Hypoxia [Recovered/Resolved]
  - Dyspnoea [Recovered/Resolved]
  - Nausea [Recovered/Resolved]
  - Throat tightness [Recovered/Resolved]
  - Cough [Recovered/Resolved]
  - Cold sweat [Recovered/Resolved]
  - Hyperaemia [Recovered/Resolved]
  - Hypotension [Recovered/Resolved]

NARRATIVE: CASE EVENT DATE: 20240719
